FAERS Safety Report 8799931 (Version 1)
Quarter: 2012Q4

REPORT INFORMATION
  Report Type: Spontaneous
  Country: JP (occurrence: None)
  Receive Date: 20120917
  Receipt Date: 20120917
  Transmission Date: 20130627
  Serious: Yes (Other)
  Sender: FDA-Public Use
  Company Number: JP-2012-16239

PATIENT
  Age: 85 Year
  Sex: Female

DRUGS (2)
  1. SAMSCA [Suspect]
     Indication: CARDIAC FAILURE
     Route: 048
     Dates: start: 20120628, end: 20120822
  2. DIURETICS [Suspect]

REACTIONS (2)
  - Cerebral infarction [None]
  - Dehydration [None]
